FAERS Safety Report 9265919 (Version 1)
Quarter: 2013Q2

REPORT INFORMATION
  Report Type: Spontaneous
  Country: US (occurrence: US)
  Receive Date: 20130501
  Receipt Date: 20130501
  Transmission Date: 20140414
  Serious: Yes (Other)
  Sender: FDA-Public Use
  Company Number: CHPA2013US006466

PATIENT
  Age: 54 Year
  Sex: Female

DRUGS (3)
  1. EXCEDRIN ES BACK + BODY [Suspect]
     Indication: PAIN
     Dosage: 3 DF, 3 TO 4 TIMES A WEEK
     Route: 048
  2. EXCEDRIN ES BACK + BODY [Suspect]
     Indication: FIBROMYALGIA
  3. EXCEDRIN ES BACK + BODY [Suspect]
     Indication: ARTHRALGIA

REACTIONS (3)
  - Fibromyalgia [Not Recovered/Not Resolved]
  - Off label use [Unknown]
  - Incorrect dose administered [Unknown]
